FAERS Safety Report 13854679 (Version 4)
Quarter: 2017Q4

REPORT INFORMATION
  Report Type: Spontaneous
  Country: JP (occurrence: JP)
  Receive Date: 20170810
  Receipt Date: 20171121
  Transmission Date: 20180320
  Serious: Yes (Hospitalization)
  Sender: FDA-Public Use
  Company Number: JP-ASTELLAS-2017JP004800

PATIENT
  Age: 80 Year
  Sex: Male
  Weight: 52 kg

DRUGS (7)
  1. ENSURE [Concomitant]
     Active Substance: AMINO ACIDS\DEXTROSE\ELECTROLYTES NOS\SOYBEAN OIL\VITAMINS
     Indication: PRODUCT USED FOR UNKNOWN INDICATION
     Dosage: UNK UNK, UNKNOWN FREQ.
     Route: 048
  2. FUNGUARD [Suspect]
     Active Substance: MICAFUNGIN SODIUM
     Indication: FUNGAL INFECTION
     Route: 041
     Dates: start: 20170217, end: 20170321
  3. BENAMBAX [Concomitant]
     Active Substance: PENTAMIDINE
     Indication: PNEUMONIA
     Route: 041
     Dates: start: 20170217, end: 20170305
  4. SULBACILLIN [Concomitant]
     Active Substance: AMPICILLIN SODIUM\SULBACTAM SODIUM
     Indication: PNEUMONIA
     Route: 041
     Dates: start: 20170304, end: 20170405
  5. SENNOSIDE                          /00571901/ [Concomitant]
     Active Substance: SENNOSIDES A AND B
     Indication: CONSTIPATION
     Route: 048
     Dates: start: 20170220, end: 20170324
  6. METHYLPREDNISOLONE SODIUM SUCCINATE. [Suspect]
     Active Substance: METHYLPREDNISOLONE SODIUM SUCCINATE
     Indication: INTERSTITIAL LUNG DISEASE
     Route: 041
     Dates: start: 20170216, end: 20170324
  7. MAXIPIME [Concomitant]
     Active Substance: CEFEPIME HYDROCHLORIDE
     Indication: INTERSTITIAL LUNG DISEASE
     Dosage: 0.5 G, ONCE DAILY
     Route: 041
     Dates: start: 20170211, end: 20170303

REACTIONS (5)
  - Constipation [Unknown]
  - Purpura [Not Recovered/Not Resolved]
  - Skin ulcer [Not Recovered/Not Resolved]
  - Epidermal necrosis [Not Recovered/Not Resolved]
  - Skin erosion [Not Recovered/Not Resolved]

NARRATIVE: CASE EVENT DATE: 20170220
